FAERS Safety Report 13673258 (Version 1)
Quarter: 2017Q2

REPORT INFORMATION
  Report Type: Spontaneous
  Country: GR (occurrence: GR)
  Receive Date: 20170621
  Receipt Date: 20170621
  Transmission Date: 20170830
  Serious: Yes (Other)
  Sender: FDA-Public Use
  Company Number: GR-B.I. PHARMACEUTICALS,INC./RIDGEFIELD-2017-BI-034118

PATIENT
  Age: 56 Year
  Sex: Female

DRUGS (4)
  1. ZOLEDRONIC ACID [Concomitant]
     Active Substance: ZOLEDRONIC ACID
     Indication: BONE PAIN
     Route: 065
  2. GILOTRIF [Suspect]
     Active Substance: AFATINIB
     Indication: ADENOCARCINOMA
     Dosage: 30MG
     Route: 065
  3. GILOTRIF [Suspect]
     Active Substance: AFATINIB
     Indication: LUNG INFILTRATION
     Dosage: 40MG
     Route: 065
  4. GILOTRIF [Suspect]
     Active Substance: AFATINIB
     Indication: EGFR GENE MUTATION
     Dosage: 20MG
     Route: 065

REACTIONS (6)
  - Metastases to bone [Unknown]
  - Rash [Unknown]
  - Adverse drug reaction [Unknown]
  - Pleural effusion [Unknown]
  - Lymphadenopathy mediastinal [Unknown]
  - Diarrhoea [Unknown]
